FAERS Safety Report 22981344 (Version 2)
Quarter: 2023Q4

REPORT INFORMATION
  Report Type: Spontaneous
  Country: DE (occurrence: DE)
  Receive Date: 20230925
  Receipt Date: 20231228
  Transmission Date: 20240109
  Serious: Yes (Other)
  Sender: FDA-Public Use
  Company Number: DE-KOREA IPSEN Pharma-2023-22022

PATIENT
  Age: 58 Year
  Sex: Male

DRUGS (7)
  1. NIVOLUMAB [Suspect]
     Active Substance: NIVOLUMAB
     Indication: Metastatic renal cell carcinoma
     Dosage: 240 MG BIWEEKLY
  2. NIVOLUMAB [Suspect]
     Active Substance: NIVOLUMAB
  3. CABOMETYX [Suspect]
     Active Substance: CABOZANTINIB S-MALATE
     Indication: Metastatic renal cell carcinoma
  4. CABOMETYX [Suspect]
     Active Substance: CABOZANTINIB S-MALATE
  5. DENOSUMAB [Concomitant]
     Active Substance: DENOSUMAB
     Indication: Osteoporosis
     Dosage: UNK
  6. CHOLECALCIFEROL [Concomitant]
     Active Substance: CHOLECALCIFEROL
     Indication: Osteoporosis
     Dosage: UNK
  7. CALCIUM [Concomitant]
     Active Substance: CALCIUM
     Indication: Osteoporosis
     Dosage: UNK

REACTIONS (4)
  - Immune-mediated enterocolitis [Recovering/Resolving]
  - Electrolyte imbalance [Recovering/Resolving]
  - Hyperthyroidism [Recovering/Resolving]
  - Malignant neoplasm progression [Recovering/Resolving]
